FAERS Safety Report 9125094 (Version 1)
Quarter: 2013Q1

REPORT INFORMATION
  Report Type: Spontaneous
  Country: US (occurrence: US)
  Receive Date: 20130117
  Receipt Date: 20130117
  Transmission Date: 20140127
  Serious: Yes (Other)
  Sender: FDA-Public Use
  Company Number: US-PFIZER INC-2013017713

PATIENT
  Sex: Female
  Weight: 45.4 kg

DRUGS (5)
  1. ADVIL [Suspect]
     Indication: NEURALGIA
     Dosage: 2 DF, TWO TO THREE TIMES A DAY
     Route: 048
  2. TRAMADOL HCL [Suspect]
     Indication: NEURALGIA
     Dosage: 150 MG, 2X/DAY
     Route: 048
  3. GABAPENTIN [Suspect]
     Indication: NEURALGIA
     Dosage: 200 MG, 2X/DAY
  4. GABAPENTIN [Suspect]
     Indication: NERVE INJURY
  5. TYLENOL [Suspect]
     Indication: NEURALGIA
     Dosage: 500 MG TO 600 MG TWO TIMES A DAY OCCASIONALLY

REACTIONS (6)
  - Arthropathy [Unknown]
  - Back disorder [Unknown]
  - Spinal disorder [Unknown]
  - Drug ineffective [Unknown]
  - Neuralgia [Unknown]
  - Burning sensation [Unknown]
